FAERS Safety Report 5080666-6 (Version None)
Quarter: 2006Q3

REPORT INFORMATION
  Report Type: 
  Country: None (occurrence: None)
  Receive Date: 20060720
  Receipt Date: 20051227
  Transmission Date: 20061208
  Serious: Yes (Other)
  Sender: FDA-Public Use
  Company Number: 2005162102

PATIENT
  Age: 44 Year
  Sex: Male

DRUGS (4)
  1. CELEBREX [Suspect]
     Indication: BACK INJURY
     Dosage: 400 MG (200 MG, 1 D)
     Dates: start: 20051116, end: 20051117
  2. CELEBREX [Suspect]
     Indication: BACK PAIN
     Dosage: 400 MG (200 MG, 1 D)
     Dates: start: 20051116, end: 20051117
  3. ULTRACET [Suspect]
     Indication: BACK INJURY
     Dosage: ORAL
     Route: 048
     Dates: start: 20051116, end: 20051117
  4. ULTRACET [Suspect]
     Indication: BACK PAIN
     Dosage: ORAL
     Route: 048
     Dates: start: 20051116, end: 20051117

REACTIONS (1)
  - STEVENS-JOHNSON SYNDROME [None]
